FAERS Safety Report 21994571 (Version 1)
Quarter: 2023Q1

REPORT INFORMATION
  Report Type: Spontaneous
  Country: US (occurrence: None)
  Receive Date: 20230214
  Receipt Date: 20230214
  Transmission Date: 20230418
  Serious: Yes (Other)
  Sender: FDA-Public Use
  Company Number: None

PATIENT
  Age: 71 Year
  Sex: Female
  Weight: 63.5 kg

DRUGS (13)
  1. METHYLPREDNISOLONE [Suspect]
     Active Substance: METHYLPREDNISOLONE
     Indication: Arthritis
     Dosage: FREQUENCY : DAILY;?
     Route: 048
     Dates: start: 20220729, end: 20220804
  2. PREDNISONE [Suspect]
     Active Substance: PREDNISONE
  3. LEVOTHYROXINE [Concomitant]
     Active Substance: LEVOTHYROXINE
  4. IBUPROFEN [Concomitant]
     Active Substance: IBUPROFEN
  5. IBUPROFEN [Concomitant]
     Active Substance: IBUPROFEN
  6. ALPRAZOLAM [Concomitant]
     Active Substance: ALPRAZOLAM
  7. EZTETIMIBE [Concomitant]
  8. ESTARIAL CREAM [Concomitant]
  9. VITAMIN A [Concomitant]
     Active Substance: VITAMIN A
  10. VITAMIN D [Concomitant]
     Active Substance: VITAMIN D NOS
  11. VITAMIN C [Concomitant]
     Active Substance: ASCORBIC ACID
  12. VITAMIN B COMPLEX [Concomitant]
     Active Substance: CYANOCOBALAMIN\DEXPANTHENOL\NIACINAMIDE\PYRIDOXINE HYDROCHLORIDE\RIBOFLAVIN 5^-PHOSPHATE SODIUM\THIA
  13. MACA [Concomitant]

REACTIONS (2)
  - Urethral caruncle [None]
  - Vaginal disorder [None]

NARRATIVE: CASE EVENT DATE: 20220729
